FAERS Safety Report 7496511-5 (Version None)
Quarter: 2011Q2

REPORT INFORMATION
  Report Type: 
  Country: None (occurrence: None)
  Receive Date: 20110523
  Receipt Date: 20110520
  Transmission Date: 20111010
  Serious: Yes (Other)
  Sender: FDA-Public Use
  Company Number: US-ROCHE-778486

PATIENT
  Sex: Female

DRUGS (3)
  1. CLARAVIS [Suspect]
     Indication: ACNE
     Route: 065
     Dates: start: 20060701, end: 20070201
  2. ACCUTANE [Suspect]
     Route: 065
     Dates: start: 19831001, end: 19840401
  3. ACCUTANE [Suspect]
     Route: 065
     Dates: start: 20020601, end: 20030101

REACTIONS (2)
  - ANXIETY [None]
  - INFLAMMATORY BOWEL DISEASE [None]
